FAERS Safety Report 13439905 (Version 1)
Quarter: 2017Q2

REPORT INFORMATION
  Report Type: Spontaneous
  Country: GB (occurrence: GB)
  Receive Date: 20170413
  Receipt Date: 20170413
  Transmission Date: 20170830
  Serious: Yes (Other)
  Sender: FDA-Public Use
  Company Number: GB-DSJP-DSE-2017-111777

PATIENT

DRUGS (1)
  1. LIXIANA [Suspect]
     Active Substance: EDOXABAN TOSYLATE
     Indication: PULMONARY EMBOLISM
     Dosage: 1 DF, QD
     Route: 048
     Dates: start: 20170306

REACTIONS (6)
  - Arthralgia [Not Recovered/Not Resolved]
  - Papule [Recovered/Resolved]
  - Emotional distress [Unknown]
  - Fatigue [Not Recovered/Not Resolved]
  - Myalgia [Unknown]
  - Rash [Not Recovered/Not Resolved]

NARRATIVE: CASE EVENT DATE: 2017
